FAERS Safety Report 11719291 (Version 1)
Quarter: 2015Q4

REPORT INFORMATION
  Report Type: Spontaneous
  Country: US (occurrence: None)
  Receive Date: 20151109
  Receipt Date: 20151109
  Transmission Date: 20160304
  Serious: No
  Sender: FDA-Public Use
  Company Number: None

PATIENT
  Age: 53 Year
  Sex: Female
  Weight: 123.83 kg

DRUGS (10)
  1. CIPROFLOXACIN HCL 500MG [Suspect]
     Active Substance: CIPROFLOXACIN HYDROCHLORIDE
     Indication: UPPER RESPIRATORY TRACT INFECTION
     Route: 048
     Dates: start: 20151027, end: 20151029
  2. BENZONATATE. [Concomitant]
     Active Substance: BENZONATATE
  3. AMOX TR-K CLV 875-125 MG [Concomitant]
  4. PROAIR HFA [Concomitant]
     Active Substance: ALBUTEROL SULFATE
  5. Q-10 [Concomitant]
  6. DRAGON FRUIT TEA [Concomitant]
  7. CYCLOBENZAPRINE [Concomitant]
     Active Substance: CYCLOBENZAPRINE
  8. MAGNESIUM [Concomitant]
     Active Substance: MAGNESIUM
  9. CIPRO [Concomitant]
     Active Substance: CIPROFLOXACIN HYDROCHLORIDE
  10. ANTIOXIDENTS [Concomitant]

REACTIONS (13)
  - Spinal pain [None]
  - Eyelid ptosis [None]
  - Asthenia [None]
  - Activities of daily living impaired [None]
  - Pain in extremity [None]
  - Dizziness [None]
  - Impaired driving ability [None]
  - Back pain [None]
  - Arthralgia [None]
  - Tendon disorder [None]
  - Neck pain [None]
  - Musculoskeletal pain [None]
  - Musculoskeletal disorder [None]

NARRATIVE: CASE EVENT DATE: 20151029
